FAERS Safety Report 8030295-7 (Version None)
Quarter: 2012Q1

REPORT INFORMATION
  Report Type: 
  Country: None (occurrence: None)
  Receive Date: 20120105
  Receipt Date: 20111221
  Transmission Date: 20120608
  Serious: Yes (Death, Life-Threatening, Hospitalization, Other)
  Sender: FDA-Public Use
  Company Number: AXC-2011-000532

PATIENT

DRUGS (3)
  1. PREDNISONE [Concomitant]
  2. URSODIOL [Suspect]
     Indication: CHOLESTASIS
     Dosage: ORAL
     Route: 048
     Dates: start: 20110701, end: 20110823
  3. AZATHIOPRINE [Suspect]
     Indication: AUTOIMMUNE HEPATITIS
     Dosage: 125 MG, QD, ORAL
     Route: 048
     Dates: start: 20110701, end: 20110823

REACTIONS (23)
  - HEPATITIS CHOLESTATIC [None]
  - SEPSIS [None]
  - NEUROLOGICAL DECOMPENSATION [None]
  - PORTAL HYPERTENSION [None]
  - PANCYTOPENIA [None]
  - CHOLECYSTITIS INFECTIVE [None]
  - ASCITES [None]
  - RENAL FAILURE [None]
  - GASTROINTESTINAL HAEMORRHAGE [None]
  - CYTOMEGALOVIRUS INFECTION [None]
  - INFECTIOUS PERITONITIS [None]
  - OLIGURIA [None]
  - HEPATIC FAILURE [None]
  - TRUNCUS COELIACUS THROMBOSIS [None]
  - CEREBRAL HAEMORRHAGE [None]
  - HAEMODYNAMIC INSTABILITY [None]
  - HEPATIC FIBROSIS [None]
  - GASTRIC ULCER [None]
  - RESPIRATORY FAILURE [None]
  - METABOLIC ACIDOSIS [None]
  - BONE MARROW TOXICITY [None]
  - SHOCK HAEMORRHAGIC [None]
  - OESOPHAGITIS [None]
